FAERS Safety Report 8445788-8 (Version None)
Quarter: 2012Q2

REPORT INFORMATION
  Report Type: 
  Country: None (occurrence: None)
  Receive Date: 20120618
  Receipt Date: 20120613
  Transmission Date: 20120825
  Serious: Yes (Hospitalization, Other)
  Sender: FDA-Public Use
  Company Number: US-PFIZER INC-2009261882

PATIENT
  Sex: Female

DRUGS (4)
  1. CHANTIX [Suspect]
     Indication: SMOKING CESSATION THERAPY
     Dosage: STARTER PACK
     Dates: start: 20061001, end: 20061001
  2. ALBUTEROL [Concomitant]
     Dosage: UNK
     Dates: start: 20040101
  3. CHANTIX [Suspect]
     Dosage: STARTER PACK AND 1 MG PACK
     Route: 048
     Dates: start: 20070606, end: 20070829
  4. MONTELUKAST [Concomitant]
     Indication: HYPERSENSITIVITY
     Dosage: UNK
     Dates: start: 20040101

REACTIONS (8)
  - DEPRESSION [None]
  - INSOMNIA [None]
  - ANXIETY [None]
  - BIPOLAR DISORDER [None]
  - DELUSION [None]
  - SUICIDE ATTEMPT [None]
  - PSYCHOTIC DISORDER [None]
  - INTENTIONAL OVERDOSE [None]
